FAERS Safety Report 22255826 (Version 10)
Quarter: 2023Q2

REPORT INFORMATION
  Report Type: Report from Study
  Country: FI (occurrence: None)
  Receive Date: 20230426
  Receipt Date: 20230614
  Transmission Date: 20230722
  Serious: Yes (Hospitalization)
  Sender: FDA-Public Use
  Company Number: FI-Eisai Inc (Eisai China)-EC-2023-138925

PATIENT
  Age: 59 Year
  Sex: Male
  Weight: 97 kg

DRUGS (13)
  1. LENVATINIB [Suspect]
     Active Substance: LENVATINIB
     Indication: Clear cell renal cell carcinoma
     Route: 048
     Dates: start: 20230214, end: 20230417
  2. LENVATINIB [Suspect]
     Active Substance: LENVATINIB
     Route: 048
     Dates: start: 20230523
  3. PEMBROLIZUMAB [Suspect]
     Active Substance: PEMBROLIZUMAB
     Indication: Clear cell renal cell carcinoma
     Route: 041
     Dates: start: 20230214, end: 20230328
  4. PEMBROLIZUMAB [Suspect]
     Active Substance: PEMBROLIZUMAB
     Route: 041
     Dates: start: 20230523
  5. AMLODIPINE [Concomitant]
     Active Substance: AMLODIPINE BESYLATE
     Dates: start: 20230131
  6. MICARDIS [Concomitant]
     Active Substance: TELMISARTAN
     Dates: start: 20230211, end: 20230420
  7. HYDREX [HYDROCHLOROTHIAZIDE] [Concomitant]
     Dates: start: 20230308, end: 20230420
  8. LEVOTHYROXINE [Concomitant]
     Active Substance: LEVOTHYROXINE
     Dates: start: 20230322
  9. DECUBAL [Concomitant]
     Dates: start: 20230328, end: 20230418
  10. BEMETSON [Concomitant]
     Dates: start: 20230328, end: 20230417
  11. PANTOPRAZOLE SODIUM [Concomitant]
     Active Substance: PANTOPRAZOLE SODIUM
     Dates: start: 202301, end: 20230419
  12. ACETAMINOPHEN [Concomitant]
     Active Substance: ACETAMINOPHEN
     Dates: start: 20230412, end: 20230420
  13. LOPEX [Concomitant]
     Dates: start: 20230418, end: 20230418

REACTIONS (2)
  - Hydronephrosis [Recovered/Resolved]
  - Pyelonephritis [Recovered/Resolved]

NARRATIVE: CASE EVENT DATE: 20230418
